FAERS Safety Report 4570318-0 (Version None)
Quarter: 2005Q1

REPORT INFORMATION
  Report Type: 
  Country: None (occurrence: None)
  Receive Date: 20050204
  Receipt Date: 20041216
  Transmission Date: 20050727
  Serious: Yes (Life-Threatening, Hospitalization)
  Sender: FDA-Public Use
  Company Number: US-BOEHRINGER INGELHEIM PHARMMACEUTICALS, INC.-2004-BP-13851BP

PATIENT
  Sex: Male

DRUGS (17)
  1. SPIRIVA [Suspect]
     Indication: CHRONIC OBSTRUCTIVE PULMONARY DISEASE
     Route: 055
     Dates: start: 20041201
  2. SPIRIVA [Suspect]
     Indication: ASTHMA
  3. COUMADIN [Suspect]
     Indication: ANTICOAGULANT THERAPY
     Dosage: 2-1/2 MG AT BEDTIME ON MONDAY AND THURSDAY
  4. FLOMAX [Concomitant]
     Indication: PROSTATIC DISORDER
     Dosage: TAKEN AT AM
  5. PROSCAR [Concomitant]
     Indication: PROSTATIC DISORDER
     Dosage: TAKEN AT AM
  6. PLAVIX [Concomitant]
     Indication: ANTICOAGULANT THERAPY
     Dosage: TAKEN AT AM
  7. TOPROL-XL [Concomitant]
     Indication: BLOOD PRESSURE
     Dosage: TAKEN AT AM
  8. TOPROL-XL [Concomitant]
     Indication: ANGINA PECTORIS
  9. PROTONIX [Concomitant]
     Indication: GASTROOESOPHAGEAL REFLUX DISEASE
     Dosage: TAKEN AT AM
  10. ASPIRIN [Concomitant]
     Indication: ANTICOAGULANT THERAPY
     Dosage: TAKEN AT AM
  11. DIOVAN [Concomitant]
     Indication: BLOOD PRESSURE
     Dosage: TAKEN AT AM
  12. LIPITOR [Concomitant]
     Indication: BLOOD CHOLESTEROL
     Dosage: 40MG TAKEN AT PM
  13. CLONAZEPAM [Concomitant]
     Indication: ANXIETY
     Dosage: 0.5MG AT BEDTIME
  14. ADVAIR DISKUS 100/50 [Concomitant]
     Indication: ASTHMA
     Dosage: 1 PUFF IN THE MORNING
  15. ALBUTEROL [Concomitant]
     Indication: ASTHMA
     Dosage: 2 PUFFS AS NEEDED
  16. NASONEX [Concomitant]
     Indication: HYPERSENSITIVITY
     Dosage: 1 SPRAY EACH NOSTROL AS NEEDED
  17. ALLEGRA [Concomitant]
     Indication: HYPERSENSITIVITY
     Dosage: AVOID USAGE AT PRESENT TIME

REACTIONS (3)
  - COUGH [None]
  - HAEMOPTYSIS [None]
  - MYOCARDIAL INFARCTION [None]
